FAERS Safety Report 6765066-2 (Version None)
Quarter: 2010Q2

REPORT INFORMATION
  Report Type: 
  Country: None (occurrence: None)
  Receive Date: 20100609
  Receipt Date: 20100609
  Transmission Date: 20101027
  Serious: No
  Sender: FDA-Public Use
  Company Number: None

PATIENT
  Age: 59 Year
  Sex: Male

DRUGS (1)
  1. GABAPENTIN [Suspect]
     Indication: PAIN
     Dosage: 1 TABLET BY MOUTH IN THE MORNING, 1 TABLET AT NOUN AND 3 TABLETS AT BEDTIME

REACTIONS (3)
  - INCORRECT DOSE ADMINISTERED [None]
  - PRODUCT FRIABLE [None]
  - TABLET ISSUE [None]
